FAERS Safety Report 19110068 (Version 1)
Quarter: 2021Q2

REPORT INFORMATION
  Report Type: Report from Study
  Country: ES (occurrence: ES)
  Receive Date: 20210409
  Receipt Date: 20210409
  Transmission Date: 20210717
  Serious: Yes (Other)
  Sender: FDA-Public Use
  Company Number: ES-AUROBINDO-AUR-APL-2019-077342

PATIENT
  Age: 36 Year
  Sex: Male

DRUGS (10)
  1. ACETYLSALICYLIC ACID [Suspect]
     Active Substance: ASPIRIN
     Indication: DRUG PROVOCATION TEST
     Dosage: UNK
     Route: 065
  2. ACETYLSALICYLIC ACID [Suspect]
     Active Substance: ASPIRIN
     Dosage: 500 MILLIGRAM
     Route: 048
  3. TRIFLUSAL [Concomitant]
     Active Substance: TRIFLUSAL
     Indication: DRUG PROVOCATION TEST
     Dosage: 75 MILLIGRAM
     Route: 065
  4. TRIFLUSAL [Concomitant]
     Active Substance: TRIFLUSAL
     Dosage: 150 MILLIGRAM
     Route: 065
  5. TRIFLUSAL [Concomitant]
     Active Substance: TRIFLUSAL
     Dosage: 300 MILLIGRAM ON DAY1 AND DAY 2
     Route: 065
  6. ACETYLSALICYLIC ACID [Suspect]
     Active Substance: ASPIRIN
     Dosage: 50 MILLIGRAM
     Route: 048
  7. IBUPROFEN. [Suspect]
     Active Substance: IBUPROFEN
     Indication: PRODUCT USED FOR UNKNOWN INDICATION
     Dosage: UNK
     Route: 065
  8. TRIFLUSAL [Concomitant]
     Active Substance: TRIFLUSAL
     Dosage: 600 MILLIGRAM
     Route: 065
  9. ACETYLSALICYLIC ACID [Suspect]
     Active Substance: ASPIRIN
     Dosage: 125 MILLIGRAM
     Route: 048
  10. ACETYLSALICYLIC ACID [Suspect]
     Active Substance: ASPIRIN
     Dosage: 250 MILLIGRAM
     Route: 048

REACTIONS (2)
  - Type I hypersensitivity [Unknown]
  - Angioedema [Unknown]
